FAERS Safety Report 15761576 (Version 1)
Quarter: 2018Q4

REPORT INFORMATION
  Report Type: Report from Study
  Country: US (occurrence: US)
  Receive Date: 20181226
  Receipt Date: 20181226
  Transmission Date: 20190205
  Serious: Yes (Other)
  Sender: FDA-Public Use
  Company Number: US-MYLANLABS-2018M1093951

PATIENT

DRUGS (1)
  1. GLATIRAMER ACETATE INJECTION [Suspect]
     Active Substance: GLATIRAMER ACETATE
     Indication: RELAPSING-REMITTING MULTIPLE SCLEROSIS
     Dosage: 40 MILLIGRAM, 3XW
     Route: 058
     Dates: start: 201706, end: 2017

REACTIONS (8)
  - Alopecia [Recovered/Resolved]
  - Injection site mass [Recovered/Resolved]
  - Crying [Recovered/Resolved]
  - Breast cancer [Unknown]
  - Injection site nodule [Recovered/Resolved]
  - Feeling abnormal [Recovered/Resolved]
  - Injection site erythema [Recovered/Resolved]
  - Injection site pain [Recovered/Resolved]
